FAERS Safety Report 10128723 (Version 1)
Quarter: 2014Q2

REPORT INFORMATION
  Report Type: Spontaneous
  Country: US (occurrence: None)
  Receive Date: 20140424
  Receipt Date: 20140424
  Transmission Date: 20141212
  Serious: Yes (Hospitalization)
  Sender: FDA-Public Use
  Company Number: None

PATIENT
  Age: 73 Year
  Sex: Male
  Weight: 64.5 kg

DRUGS (5)
  1. PEMETREXED [Suspect]
     Indication: MESOTHELIOMA MALIGNANT
     Route: 042
     Dates: start: 20140320, end: 20140320
  2. DIOVAN HCT [Concomitant]
  3. ACETAMINOPHEN-OXYCODONE [Concomitant]
  4. GABAPENTIN [Concomitant]
  5. LIPITOR [Concomitant]

REACTIONS (8)
  - Headache [None]
  - Haemolytic anaemia [None]
  - Renal failure acute [None]
  - Arthralgia [None]
  - Chest discomfort [None]
  - Rash [None]
  - Dyspnoea [None]
  - Haematuria [None]
